FAERS Safety Report 7649922-9 (Version None)
Quarter: 2011Q3

REPORT INFORMATION
  Report Type: 
  Country: None (occurrence: None)
  Receive Date: 20110802
  Receipt Date: 20110728
  Transmission Date: 20111222
  Serious: Yes (Death)
  Sender: FDA-Public Use
  Company Number: US-PFIZER INC-2006141068

PATIENT

DRUGS (3)
  1. ASPIRIN [Suspect]
     Dosage: UNSPECIFIED
     Route: 065
  2. HYDROCODONE BITARTRATE + ACETAMINOPHEN [Suspect]
     Dosage: UNSPECIFIED
     Route: 065
  3. BENZONATATE [Suspect]
     Dosage: UNSPECIFIED
     Route: 065

REACTIONS (2)
  - RESPIRATORY ARREST [None]
  - CARDIAC ARREST [None]
